FAERS Safety Report 9754434 (Version 1)
Quarter: 2013Q4

REPORT INFORMATION
  Report Type: Spontaneous
  Country: IT (occurrence: IT)
  Receive Date: 20131213
  Receipt Date: 20131213
  Transmission Date: 20140711
  Serious: Yes (Hospitalization)
  Sender: FDA-Public Use
  Company Number: IT-BRISTOL-MYERS SQUIBB COMPANY-19874973

PATIENT
  Age: 60 Year
  Sex: Female

DRUGS (8)
  1. COUMADIN TABS 5 MG [Suspect]
     Indication: ATRIAL FIBRILLATION
     Dosage: 1DF: 1UNIT
     Route: 048
     Dates: start: 20080101, end: 20131122
  2. RYTMONORM [Concomitant]
     Dosage: RYTMONORM 150MG TABS
  3. APROVEL TABS 150 MG [Concomitant]
  4. LASIX [Concomitant]
     Dosage: LASIX 25MG TABS
  5. PANTORC [Concomitant]
     Dosage: PANTORC 20MG TABS
  6. BUDESONIDE + FORMOTEROL FUMARATE [Concomitant]
     Dosage: SINESTIC 160/4.5MCG INHALATOR
  7. DELTACORTENE [Concomitant]
     Dosage: DELTACORTENE 5MG TABS
  8. BACTRIM [Concomitant]
     Dosage: BACTRIM 160+800 MG TABS

REACTIONS (3)
  - Renal failure acute [Not Recovered/Not Resolved]
  - Epistaxis [Not Recovered/Not Resolved]
  - International normalised ratio increased [Not Recovered/Not Resolved]
